FAERS Safety Report 6050230-0 (Version None)
Quarter: 2009Q1

REPORT INFORMATION
  Report Type: 
  Country: None (occurrence: None)
  Receive Date: 20090122
  Receipt Date: 20090122
  Transmission Date: 20090719
  Serious: Yes (Hospitalization)
  Sender: FDA-Public Use
  Company Number: None

PATIENT
  Age: 70 Year
  Sex: Male
  Weight: 77.1115 kg

DRUGS (1)
  1. FLOMAX [Suspect]
     Indication: BENIGN PROSTATIC HYPERPLASIA
     Dosage: 1 PILL 1 A DAY PO
     Route: 048
     Dates: start: 20090113

REACTIONS (4)
  - AMNESIA [None]
  - CONTUSION [None]
  - HEAD INJURY [None]
  - INJURY [None]
